FAERS Safety Report 23597588 (Version 2)
Quarter: 2024Q1

REPORT INFORMATION
  Report Type: Report from Study
  Country: US (occurrence: US)
  Receive Date: 20240305
  Receipt Date: 20240307
  Transmission Date: 20240410
  Serious: Yes (Hospitalization, Other)
  Sender: FDA-Public Use
  Company Number: US-Eisai-EC-2024-160130

PATIENT
  Age: 35 Year
  Sex: Male

DRUGS (3)
  1. LENVIMA [Suspect]
     Active Substance: LENVATINIB
     Indication: Renal cell carcinoma
     Route: 048
     Dates: start: 20240214
  2. LENVIMA [Suspect]
     Active Substance: LENVATINIB
     Indication: Bone cancer
     Route: 048
     Dates: start: 20240227, end: 20240304
  3. KEYTRUDA [Concomitant]
     Active Substance: PEMBROLIZUMAB

REACTIONS (7)
  - Pulmonary embolism [Unknown]
  - Pulmonary oedema [Unknown]
  - Pyrexia [Unknown]
  - Rash [Unknown]
  - Hypoaesthesia [Unknown]
  - Tremor [Unknown]
  - Malignant neoplasm progression [Unknown]

NARRATIVE: CASE EVENT DATE: 20240201
